FAERS Safety Report 7781704-X (Version None)
Quarter: 2011Q3

REPORT INFORMATION
  Report Type: 
  Country: None (occurrence: None)
  Receive Date: 20110927
  Receipt Date: 20110922
  Transmission Date: 20111222
  Serious: Yes (Death)
  Sender: FDA-Public Use
  Company Number: US-GLAXOSMITHKLINE-A0843868A

PATIENT
  Age: 42 Year
  Sex: Male
  Weight: 90.9 kg

DRUGS (6)
  1. PROTONIX [Concomitant]
  2. AVANDIA [Suspect]
     Indication: TYPE 2 DIABETES MELLITUS
     Dosage: 4MG PER DAY
     Route: 048
     Dates: start: 20030101, end: 20090101
  3. COZAAR [Concomitant]
  4. NORVASC [Concomitant]
  5. ZOCOR [Concomitant]
  6. LEVOXYL [Concomitant]

REACTIONS (9)
  - DYSPNOEA [None]
  - DIABETIC NEPHROPATHY [None]
  - HAEMODIALYSIS [None]
  - RENAL FAILURE CHRONIC [None]
  - SUDDEN CARDIAC DEATH [None]
  - PLEURAL EFFUSION [None]
  - CARDIAC FAILURE CONGESTIVE [None]
  - CELLULITIS [None]
  - OEDEMA PERIPHERAL [None]
